FAERS Safety Report 14771959 (Version 2)
Quarter: 2018Q2

REPORT INFORMATION
  Report Type: Report from Study
  Country: US (occurrence: US)
  Receive Date: 20180417
  Receipt Date: 20180601
  Transmission Date: 20180711
  Serious: Yes (Other)
  Sender: FDA-Public Use
  Company Number: PHHY2018US066729

PATIENT
  Age: 40 Year
  Sex: Female

DRUGS (8)
  1. EVEROLIMUS. [Concomitant]
     Active Substance: EVEROLIMUS
     Indication: BREAST CANCER STAGE I
     Route: 065
  2. CYTOXAN [Concomitant]
     Active Substance: CYCLOPHOSPHAMIDE
     Indication: BREAST CANCER STAGE I
     Route: 065
  3. COMPARATOR LETROZOLE [Suspect]
     Active Substance: LETROZOLE
     Route: 065
  4. TAXOTERE [Concomitant]
     Active Substance: DOCETAXEL
     Indication: BREAST CANCER STAGE I
     Route: 065
  5. KISQALI [Suspect]
     Active Substance: RIBOCICLIB
     Indication: BREAST CANCER STAGE I
     Route: 048
  6. XELODA [Concomitant]
     Active Substance: CAPECITABINE
     Indication: BREAST CANCER STAGE I
     Route: 065
  7. TAXOL [Concomitant]
     Active Substance: PACLITAXEL
     Indication: BREAST CANCER STAGE I
     Dosage: WEEKLY
     Route: 065
  8. EXEMESTANE. [Concomitant]
     Active Substance: EXEMESTANE
     Indication: BREAST CANCER STAGE I
     Route: 065

REACTIONS (2)
  - Breast cancer stage I [Unknown]
  - Malignant neoplasm progression [Unknown]
